FAERS Safety Report 6972945-X (Version None)
Quarter: 2010Q3

REPORT INFORMATION
  Report Type: 
  Country: None (occurrence: None)
  Receive Date: 20100909
  Receipt Date: 20100521
  Transmission Date: 20110219
  Serious: No
  Sender: FDA-Public Use
  Company Number: US-KINGPHARMUSA00001-K201000641

PATIENT
  Sex: Male
  Weight: 104.76 kg

DRUGS (4)
  1. EMBEDA [Suspect]
     Indication: MUSCLE INJURY
     Dosage: 30 MG, QD
     Route: 048
     Dates: start: 20100516, end: 20100518
  2. VICODIN [Concomitant]
     Indication: BREAKTHROUGH PAIN
     Dosage: 1 DF, EVERY 6-8 HOURS
  3. BACLOFEN [Concomitant]
     Indication: MUSCLE SPASMS
     Dosage: 1 EVERY 8 HOURS
  4. VOLTAREN [Concomitant]
     Indication: ROTATOR CUFF SYNDROME
     Dosage: UP TO 4 TIMES A DAY
     Route: 061

REACTIONS (2)
  - DIZZINESS [None]
  - SOMNOLENCE [None]
